FAERS Safety Report 4703751-4 (Version None)
Quarter: 2005Q2

REPORT INFORMATION
  Report Type: 
  Country: None (occurrence: None)
  Receive Date: 20050628
  Receipt Date: 20050613
  Transmission Date: 20051028
  Serious: Yes (Death)
  Sender: FDA-Public Use
  Company Number: USA050699415

PATIENT
  Age: 71 Year
  Sex: Female
  Weight: 63 kg

DRUGS (10)
  1. XIGRIS [Suspect]
     Indication: SEPSIS
     Dosage: 24 UG/KG/HR
     Dates: start: 20050527, end: 20050529
  2. CIPRO [Concomitant]
  3. ZYVOX [Concomitant]
  4. LOVENOX [Concomitant]
  5. INSULIN /00030501/ [Concomitant]
  6. PREVACID [Concomitant]
  7. NORMAL SALINE [Concomitant]
  8. ALBUMIN NOS [Concomitant]
  9. MORPHINE SULFATE [Concomitant]
  10. DIPRIVAN [Concomitant]

REACTIONS (9)
  - BLOOD BICARBONATE DECREASED [None]
  - BLOOD CREATININE INCREASED [None]
  - BLOOD PH DECREASED [None]
  - DRUG INEFFECTIVE [None]
  - HAEMATOCRIT DECREASED [None]
  - HAEMORRHAGE [None]
  - PLATELET COUNT DECREASED [None]
  - RESPIRATORY FAILURE [None]
  - SEPTIC SHOCK [None]
